FAERS Safety Report 23904066 (Version 1)
Quarter: 2024Q2

REPORT INFORMATION
  Report Type: Report from Study
  Country: CA (occurrence: CA)
  Receive Date: 20240527
  Receipt Date: 20240527
  Transmission Date: 20240716
  Serious: Yes (Death)
  Sender: FDA-Public Use
  Company Number: CA-CHIESI-2024CHF02993

PATIENT
  Sex: Male
  Weight: 73 kg

DRUGS (1)
  1. DEFERIPRONE [Suspect]
     Active Substance: DEFERIPRONE
     Indication: Sickle cell disease
     Dosage: 7000 MILLIGRAM, QD
     Route: 048
     Dates: start: 20140915

REACTIONS (1)
  - Death [Fatal]
